FAERS Safety Report 8259482-X (Version None)
Quarter: 2012Q2

REPORT INFORMATION
  Report Type: 
  Country: None (occurrence: None)
  Receive Date: 20120404
  Receipt Date: 20120327
  Transmission Date: 20120825
  Serious: Yes (Other)
  Sender: FDA-Public Use
  Company Number: US-ASTRAZENECA-2012SE04321

PATIENT
  Age: 49 Year
  Sex: Female

DRUGS (1)
  1. SYMBICORT [Suspect]
     Dosage: UNKNOWN DOSE
     Route: 055

REACTIONS (1)
  - LUNG NEOPLASM MALIGNANT [None]
